FAERS Safety Report 5703710-9 (Version None)
Quarter: 2008Q2

REPORT INFORMATION
  Report Type: 
  Country: None (occurrence: None)
  Receive Date: 20080413
  Receipt Date: 20080404
  Transmission Date: 20081010
  Serious: Yes (Other)
  Sender: FDA-Public Use
  Company Number: PHHO2006BE10254

PATIENT
  Age: 67 Year
  Sex: Male
  Weight: 104 kg

DRUGS (3)
  1. ZOLEDRONIC ACID [Suspect]
     Indication: METASTASES TO BONE
     Dosage: 4 MG, QMO
     Route: 042
     Dates: start: 20051202, end: 20060526
  2. CHEMOTHERAPEUTICS,OTHER [Concomitant]
  3. ASPIRIN [Concomitant]
     Dates: start: 19950101

REACTIONS (2)
  - JAW DISORDER [None]
  - ORAL CAVITY FISTULA [None]
